FAERS Safety Report 6472403-5 (Version None)
Quarter: 2009Q4

REPORT INFORMATION
  Report Type: 
  Country: None (occurrence: None)
  Receive Date: 20091203
  Receipt Date: 20091201
  Transmission Date: 20100525
  Serious: Yes (Hospitalization, Congenital Anomaly)
  Sender: FDA-Public Use
  Company Number: DE-MERCK-0912DEU00005B1

PATIENT
  Age: 0 Day
  Sex: Male
  Weight: 5 kg

DRUGS (1)
  1. PROPECIA [Suspect]
     Route: 064

REACTIONS (1)
  - CRYPTORCHISM [None]
